FAERS Safety Report 11663312 (Version 2)
Quarter: 2018Q2

REPORT INFORMATION
  Report Type: Spontaneous
  Country: ES (occurrence: ES)
  Receive Date: 20151027
  Receipt Date: 20180420
  Transmission Date: 20180711
  Serious: Yes (Other)
  Sender: FDA-Public Use
  Company Number: ES-009507513-1510ESP004495

PATIENT
  Sex: Male

DRUGS (1)
  1. TIMOTHY GRASS POLLEN ALLERGEN EXTRACT [Suspect]
     Active Substance: PHLEUM PRATENSE POLLEN
     Indication: SEASONAL ALLERGY
     Dosage: DAILY DOSE: 75000 SQ-T
     Route: 060
     Dates: start: 20150921, end: 2015

REACTIONS (5)
  - Mouth swelling [Recovered/Resolved]
  - Vomiting [Recovered/Resolved]
  - Throat irritation [Recovered/Resolved]
  - Aphonia [Recovered/Resolved]
  - Ear pruritus [Recovered/Resolved]

NARRATIVE: CASE EVENT DATE: 201509
